FAERS Safety Report 9832482 (Version 2)
Quarter: 2014Q1

REPORT INFORMATION
  Report Type: Report from Study
  Country: US (occurrence: US)
  Receive Date: 20140121
  Receipt Date: 20140123
  Transmission Date: 20141002
  Serious: Yes (Hospitalization)
  Sender: FDA-Public Use
  Company Number: US-JNJFOC-20140108356

PATIENT
  Age: 17 Year
  Sex: Female
  Weight: 74.1 kg

DRUGS (15)
  1. INFLIXIMAB, RECOMBINANT [Suspect]
     Indication: CROHN^S DISEASE
     Route: 042
     Dates: start: 20110413
  2. PREDNISONE [Concomitant]
     Indication: CROHN^S DISEASE
     Route: 065
  3. TACROLIMUS [Concomitant]
     Indication: CROHN^S DISEASE
     Route: 065
  4. CALCIUM CARBONATE [Concomitant]
     Route: 065
  5. ZYTREC [Concomitant]
     Route: 065
  6. FERROUS SULPHATE [Concomitant]
     Route: 065
  7. MAGNESIUM [Concomitant]
     Route: 065
  8. METOPROLOL [Concomitant]
     Route: 065
  9. MIDODRINE [Concomitant]
     Route: 065
  10. ZOFRAN [Concomitant]
     Route: 065
  11. MULTIVITAMINS [Concomitant]
     Route: 065
  12. HUMIRA [Concomitant]
     Route: 065
     Dates: start: 20120326
  13. TRAMADOL [Concomitant]
     Route: 065
  14. ZINC [Concomitant]
     Route: 065
  15. ORENCIA [Concomitant]
     Route: 065
     Dates: start: 201205, end: 20121209

REACTIONS (1)
  - Crohn^s disease [Recovered/Resolved]
